FAERS Safety Report 8134159-X (Version None)
Quarter: 2012Q1

REPORT INFORMATION
  Report Type: 
  Country: None (occurrence: None)
  Receive Date: 20120207
  Receipt Date: 20120127
  Transmission Date: 20120608
  Serious: Yes (Hospitalization, Other)
  Sender: FDA-Public Use
  Company Number: 2011SP058244

PATIENT
  Sex: Male
  Weight: 87 kg

DRUGS (24)
  1. TEMODAL [Suspect]
     Indication: GLIOBLASTOMA MULTIFORME
     Dosage: 140 MG;QD, 250 MG;QD, 20 MG;QD, 250 MG;QD, 20 MG;QD
     Dates: start: 20110406, end: 20110410
  2. TEMODAL [Suspect]
     Indication: GLIOBLASTOMA MULTIFORME
     Dosage: 140 MG;QD, 250 MG;QD, 20 MG;QD, 250 MG;QD, 20 MG;QD
     Dates: start: 20110406, end: 20110410
  3. TEMODAL [Suspect]
     Indication: GLIOBLASTOMA MULTIFORME
     Dosage: 140 MG;QD, 250 MG;QD, 20 MG;QD, 250 MG;QD, 20 MG;QD
     Dates: start: 20110126, end: 20110326
  4. TEMODAL [Suspect]
     Indication: GLIOBLASTOMA MULTIFORME
     Dosage: 140 MG;QD, 250 MG;QD, 20 MG;QD, 250 MG;QD, 20 MG;QD
     Dates: start: 20110506, end: 20110510
  5. TEMODAL [Suspect]
     Indication: GLIOBLASTOMA MULTIFORME
     Dosage: 140 MG;QD, 250 MG;QD, 20 MG;QD, 250 MG;QD, 20 MG;QD
     Dates: start: 20110506, end: 20110510
  6. FORTECORTIN [Concomitant]
  7. ESSENTIALE FORTE [Concomitant]
  8. OMEPRAZOLE [Concomitant]
  9. FORTECORTIN [Concomitant]
  10. HERPESIN [Concomitant]
  11. XYZAL [Concomitant]
  12. FUROSEMIDE [Concomitant]
  13. URSOSAN [Concomitant]
  14. NEURONTIN [Concomitant]
  15. KYTRIL [Concomitant]
  16. FLAVOBION [Concomitant]
  17. HERPESIN [Concomitant]
  18. FORTECORTIN [Concomitant]
  19. FLAVOBION [Concomitant]
  20. CLARITHROMYCIN [Concomitant]
  21. TEMSIROLIMUS [Concomitant]
  22. FORTECORTIN [Concomitant]
  23. KYTRIL [Concomitant]
  24. HERPESIN [Concomitant]

REACTIONS (10)
  - HERPES ZOSTER [None]
  - HAEMATOTOXICITY [None]
  - THROMBOCYTOPENIA [None]
  - MUSCLE SPASMS [None]
  - GAMMA-GLUTAMYLTRANSFERASE INCREASED [None]
  - ALANINE AMINOTRANSFERASE INCREASED [None]
  - HEPATOMEGALY [None]
  - ASPARTATE AMINOTRANSFERASE INCREASED [None]
  - LIVER DISORDER [None]
  - MONOPARESIS [None]
